FAERS Safety Report 6105849-5 (Version None)
Quarter: 2009Q1

REPORT INFORMATION
  Report Type: 
  Country: None (occurrence: None)
  Receive Date: 20090306
  Receipt Date: 20090223
  Transmission Date: 20090719
  Serious: Yes (Other)
  Sender: FDA-Public Use
  Company Number: DE-PFIZER INC-2009174742

PATIENT

DRUGS (2)
  1. PREDNISOLONE AND PREDNISOLONE STEAGLATE [Suspect]
     Indication: OPTIC NEURITIS
     Dosage: 1000 MG, 1X/DAY
     Route: 042
  2. PREDNISOLONE AND PREDNISOLONE STEAGLATE [Suspect]
     Route: 048

REACTIONS (1)
  - ACUTE GENERALISED EXANTHEMATOUS PUSTULOSIS [None]
